FAERS Safety Report 7679493-2 (Version None)
Quarter: 2011Q3

REPORT INFORMATION
  Report Type: 
  Country: None (occurrence: None)
  Receive Date: 20110812
  Receipt Date: 20110812
  Transmission Date: 20111222
  Serious: Yes (Hospitalization, Other)
  Sender: FDA-Public Use
  Company Number: None

PATIENT
  Age: 35 Year
  Sex: Female
  Weight: 53.52 kg

DRUGS (2)
  1. VANCOMYCIN [Suspect]
     Indication: CELLULITIS
     Dosage: 1G
     Route: 042
     Dates: start: 20110719, end: 20110726
  2. VANCOMYCIN [Concomitant]
     Indication: BACTERAEMIA
     Dosage: 1G
     Route: 042
     Dates: start: 20110731, end: 20110802

REACTIONS (4)
  - STAPHYLOCOCCAL INFECTION [None]
  - BACTERAEMIA [None]
  - THROMBOCYTOPENIA [None]
  - DEVICE RELATED INFECTION [None]
